FAERS Safety Report 25455404 (Version 1)
Quarter: 2025Q2

REPORT INFORMATION
  Report Type: Spontaneous
  Country: ES (occurrence: ES)
  Receive Date: 20250619
  Receipt Date: 20250619
  Transmission Date: 20250717
  Serious: Yes (Other)
  Sender: TEVA
  Company Number: None

PATIENT
  Age: 87 Year
  Sex: Male

DRUGS (7)
  1. FENTANYL [Suspect]
     Active Substance: FENTANYL
     Indication: Back pain
     Dosage: FENTANYL MATRIX RATIOPHARM 25 MICROGRAMS/HOUR TRANSDERMAL PATCHES, 5 PATCHES
     Route: 062
     Dates: start: 20250404, end: 20250415
  2. ATORVASTATIN [Concomitant]
     Active Substance: ATORVASTATIN
     Indication: Product used for unknown indication
     Dosage: ATORVASTATIN TEVA-RATIOPHARM, 28 TABLETS
     Route: 048
     Dates: start: 20201113
  3. ELIQUIS [Concomitant]
     Active Substance: APIXABAN
     Indication: Product used for unknown indication
     Dosage: 60 TABLETS
     Route: 048
     Dates: start: 20241114
  4. HYDROCHLOROTHIAZIDE\IRBESARTAN [Concomitant]
     Active Substance: HYDROCHLOROTHIAZIDE\IRBESARTAN
     Indication: Product used for unknown indication
     Dosage: 300 MG/12.5 MG FILM-COATED TABLETS EFG 28 TABLETS
     Route: 048
     Dates: start: 20120116
  5. DEPRAX [Concomitant]
     Indication: Product used for unknown indication
     Dosage: FILM-COATED TABLETS EFG, 30 TABLETS
     Route: 048
     Dates: start: 20250120
  6. Sitagliptina/Metformina Kern Pharma [Concomitant]
     Indication: Product used for unknown indication
     Dosage: 50 MG/1000 MG, 56 TABLETS
     Route: 048
     Dates: start: 20131204
  7. BISOPROLOL FUMARATE [Concomitant]
     Active Substance: BISOPROLOL FUMARATE
     Indication: Product used for unknown indication
     Dosage: 60 TABLETS
     Route: 048
     Dates: start: 20120116

REACTIONS (3)
  - Delirium [Recovered/Resolved]
  - Disorientation [Recovered/Resolved]
  - Agitation [Recovered/Resolved]

NARRATIVE: CASE EVENT DATE: 20250415
